FAERS Safety Report 7169429-5 (Version None)
Quarter: 2010Q4

REPORT INFORMATION
  Report Type: 
  Country: None (occurrence: None)
  Receive Date: 20101216
  Receipt Date: 20100111
  Transmission Date: 20110411
  Serious: No
  Sender: FDA-Public Use
  Company Number: US-AMGEN-KDL385238

PATIENT

DRUGS (1)
  1. ENBREL [Suspect]
     Indication: RHEUMATOID ARTHRITIS
     Dosage: UNK UNK, UNK
     Dates: start: 20091228

REACTIONS (5)
  - BACK PAIN [None]
  - COUGH [None]
  - HYPERHIDROSIS [None]
  - PAIN IN EXTREMITY [None]
  - SKIN LACERATION [None]
